FAERS Safety Report 20018010 (Version 1)
Quarter: 2021Q4

REPORT INFORMATION
  Report Type: Spontaneous
  Country: KR (occurrence: KR)
  Receive Date: 20211101
  Receipt Date: 20211101
  Transmission Date: 20220304
  Serious: Yes (Death, Other)
  Sender: FDA-Public Use
  Company Number: KR-AMGEN-KORSL2021166817

PATIENT
  Age: 58 Year
  Sex: Male

DRUGS (17)
  1. FILGRASTIM [Suspect]
     Active Substance: FILGRASTIM
     Indication: Product used for unknown indication
     Dosage: 300 MICROGRAM
     Route: 042
     Dates: start: 20150918, end: 20150919
  2. APREPITANT [Concomitant]
     Active Substance: APREPITANT
     Indication: Product used for unknown indication
     Dosage: 1 DF
     Route: 048
     Dates: start: 20150923, end: 20150925
  3. ATROPINE [Concomitant]
     Active Substance: ATROPINE
     Indication: Product used for unknown indication
     Dosage: 0.5 MILLIGRAM
     Route: 042
     Dates: start: 20150923, end: 20150923
  4. BENZYDAMINE [Concomitant]
     Active Substance: BENZYDAMINE
     Indication: Product used for unknown indication
     Dosage: 15 MILLILITER
     Route: 065
     Dates: start: 20150918, end: 20150918
  5. CHLORPHENIRAMINE MALEATE [Concomitant]
     Active Substance: CHLORPHENIRAMINE MALEATE
     Indication: Product used for unknown indication
     Dosage: 4 MG
     Route: 042
     Dates: start: 20150922, end: 20150922
  6. DEXAMETHASONE [Concomitant]
     Active Substance: DEXAMETHASONE
     Indication: Product used for unknown indication
     Dosage: 12 MILLIGRAM
     Route: 042
     Dates: start: 20150923, end: 20150923
  7. FENTANYL [Concomitant]
     Active Substance: FENTANYL
     Indication: Product used for unknown indication
     Dosage: 1 DF
     Route: 049
     Dates: start: 20150921, end: 20150922
  8. FENTANYL [Concomitant]
     Active Substance: FENTANYL
     Dosage: 2.1 MG
     Route: 065
     Dates: start: 20150921, end: 20150921
  9. FERROUS SULFATE [Concomitant]
     Active Substance: FERROUS SULFATE
     Indication: Product used for unknown indication
     Dosage: 1 DF
     Route: 048
     Dates: start: 20150918, end: 20151012
  10. FLUOROURACIL [Concomitant]
     Active Substance: FLUOROURACIL
     Indication: Product used for unknown indication
     Dosage: 2956.8 MG
     Route: 042
     Dates: start: 20150923, end: 20150924
  11. FUROSEMIDE [Concomitant]
     Active Substance: FUROSEMIDE
     Indication: Product used for unknown indication
     Dosage: 10 MG
     Route: 030
     Dates: start: 20150922, end: 20150922
  12. IRINOTECAN [Concomitant]
     Active Substance: IRINOTECAN
     Indication: Product used for unknown indication
     Dosage: 221.76 MG
     Route: 042
     Dates: start: 20150923, end: 20150923
  13. KETOPROFEN [Concomitant]
     Active Substance: KETOPROFEN
     Indication: Product used for unknown indication
     Dosage: 1 DF
     Route: 065
     Dates: start: 20150922, end: 20150922
  14. METOCLOPRAMIDE [Concomitant]
     Active Substance: METOCLOPRAMIDE
     Indication: Product used for unknown indication
     Dosage: 10 MG
     Route: 042
     Dates: start: 20150925, end: 20150925
  15. OXYCODONE [Concomitant]
     Active Substance: OXYCODONE
     Indication: Product used for unknown indication
     Dosage: 1 DF
     Route: 048
     Dates: start: 20150919, end: 20150920
  16. NALOXONE HYDROCHLORIDE\OXYCODONE HYDROCHLORIDE [Concomitant]
     Active Substance: NALOXONE HYDROCHLORIDE\OXYCODONE HYDROCHLORIDE
     Indication: Product used for unknown indication
     Dosage: 1 DF
     Route: 048
     Dates: start: 20150918, end: 20151012
  17. TAMSULOSIN [Concomitant]
     Active Substance: TAMSULOSIN
     Indication: Product used for unknown indication
     Dosage: 1 DF
     Route: 048
     Dates: start: 20150925, end: 20151012

REACTIONS (1)
  - Ileus [Fatal]

NARRATIVE: CASE EVENT DATE: 20151017
